FAERS Safety Report 10414521 (Version 2)
Quarter: 2014Q3

REPORT INFORMATION
  Report Type: Spontaneous
  Country: DE (occurrence: DE)
  Receive Date: 20140828
  Receipt Date: 20140828
  Transmission Date: 20150326
  Serious: Yes (Hospitalization, Other)
  Sender: FDA-Public Use
  Company Number: DE-BIOGENIDEC-2014BI031834

PATIENT
  Age: 54 Year
  Sex: Female

DRUGS (1)
  1. TECFIDERA [Suspect]
     Active Substance: DIMETHYL FUMARATE
     Indication: MULTIPLE SCLEROSIS
     Route: 048
     Dates: start: 20140304, end: 20140404

REACTIONS (7)
  - Diarrhoea [Not Recovered/Not Resolved]
  - Vomiting [Recovered/Resolved]
  - Abdominal pain [Recovered/Resolved]
  - Soft tissue necrosis [Not Recovered/Not Resolved]
  - Pancreatitis [Recovered/Resolved]
  - Abdominal pain upper [Not Recovered/Not Resolved]
  - Gastrointestinal mucosal disorder [Not Recovered/Not Resolved]

NARRATIVE: CASE EVENT DATE: 2014
